FAERS Safety Report 9547072 (Version 3)
Quarter: 2013Q4

REPORT INFORMATION
  Report Type: Spontaneous
  Country: US (occurrence: None)
  Receive Date: 20130920
  Receipt Date: 20131101
  Transmission Date: 20140711
  Serious: Yes (Hospitalization)
  Sender: FDA-Public Use
  Company Number: 2013-261

PATIENT
  Age: 70 Year
  Sex: Male

DRUGS (6)
  1. PRIALT [Suspect]
     Indication: PAIN
     Dosage: 0.05 UG, QH, INTRATHECAL
     Route: 037
     Dates: start: 20130521, end: 20130529
  2. PRIALT [Suspect]
     Indication: POST LAMINECTOMY SYNDROME
     Dosage: 0.05 UG, QH, INTRATHECAL
     Route: 037
     Dates: start: 20130521, end: 20130529
  3. PRIALT [Suspect]
     Indication: BACK PAIN
     Dosage: 0.05 UG, QH, INTRATHECAL
     Route: 037
     Dates: start: 20130521, end: 20130529
  4. PRIALT [Suspect]
     Indication: POST LAMINECTOMY SYNDROME
     Dosage: 0.05 UG, QH, INTRATHECAL
     Route: 037
     Dates: start: 20130521, end: 20130529
  5. ZOLOFT (SERTRALINE HYDROCHLORIDE) [Concomitant]
  6. PRIMIDONE (PRIMIDONE) [Concomitant]

REACTIONS (3)
  - Parkinson^s disease [None]
  - Pyrexia [None]
  - Musculoskeletal stiffness [None]
